FAERS Safety Report 6614066-1 (Version None)
Quarter: 2010Q1

REPORT INFORMATION
  Report Type: 
  Country: None (occurrence: None)
  Receive Date: 20100304
  Receipt Date: 20100303
  Transmission Date: 20100710
  Serious: Yes (Death, Life-Threatening, Hospitalization)
  Sender: FDA-Public Use
  Company Number: PHHY2009CA10539

PATIENT
  Sex: Female

DRUGS (10)
  1. ACLASTA [Suspect]
     Indication: OSTEOPOROSIS
     Dosage: UNK
     Dates: start: 20090120
  2. SYNTHROID [Concomitant]
  3. CELEBREX [Concomitant]
  4. PARIET [Concomitant]
  5. ALDACTONE [Concomitant]
  6. VITAMIN D [Concomitant]
  7. CALCIUM [Concomitant]
  8. SINGULAIR [Concomitant]
  9. PROZAC [Concomitant]
  10. VERSED [Concomitant]
     Dosage: 10 MG
     Route: 042

REACTIONS (13)
  - ASCITES [None]
  - CHROMATURIA [None]
  - COLON ADENOMA [None]
  - COLONIC POLYP [None]
  - DEATH [None]
  - FATIGUE [None]
  - HAEMORRHOIDS [None]
  - HEPATOMEGALY [None]
  - HYPOKALAEMIA [None]
  - JAUNDICE CHOLESTATIC [None]
  - METASTASES TO LIVER [None]
  - NAUSEA [None]
  - RECTAL PROLAPSE [None]
